FAERS Safety Report 7930706-9 (Version None)
Quarter: 2011Q4

REPORT INFORMATION
  Report Type: 
  Country: None (occurrence: None)
  Receive Date: 20111121
  Receipt Date: 20111116
  Transmission Date: 20120403
  Serious: Yes (Other)
  Sender: FDA-Public Use
  Company Number: CN-PFIZER INC-2011281122

PATIENT
  Age: 32 Year
  Sex: Male

DRUGS (2)
  1. ZIPRASIDONE HYDROCHLORIDE [Suspect]
     Dosage: 80 MG PER DAY
     Route: 048
     Dates: start: 20101222, end: 20101225
  2. ZIPRASIDONE HYDROCHLORIDE [Suspect]
     Indication: SCHIZOPHRENIA
     Dosage: 40 MG PER DAY
     Route: 048
     Dates: start: 20101220, end: 20101221

REACTIONS (1)
  - RESTLESS LEGS SYNDROME [None]
